FAERS Safety Report 17519187 (Version 1)
Quarter: 2020Q1

REPORT INFORMATION
  Report Type: Report from Study
  Country: CO (occurrence: CO)
  Receive Date: 20200310
  Receipt Date: 20200310
  Transmission Date: 20200409
  Serious: Yes (Hospitalization)
  Sender: FDA-Public Use
  Company Number: CO-ROCHE-1560633

PATIENT
  Sex: Female

DRUGS (2)
  1. MABTHERA [Suspect]
     Active Substance: RITUXIMAB
     Indication: RHEUMATOID ARTHRITIS
     Route: 041
     Dates: start: 20150318
  2. MABTHERA [Suspect]
     Active Substance: RITUXIMAB
     Indication: ARTHRITIS

REACTIONS (17)
  - General physical health deterioration [Unknown]
  - Arthritis [Unknown]
  - Arthralgia [Not Recovered/Not Resolved]
  - Arthralgia [Unknown]
  - Feeling abnormal [Unknown]
  - Hepatic steatosis [Unknown]
  - Peripheral swelling [Unknown]
  - Movement disorder [Unknown]
  - Malaise [Unknown]
  - Headache [Not Recovered/Not Resolved]
  - Blood alkaline phosphatase increased [Unknown]
  - Inflammation [Unknown]
  - Musculoskeletal pain [Unknown]
  - Adverse drug reaction [Unknown]
  - Transaminases increased [Unknown]
  - Arthritis reactive [Unknown]
  - Blood uric acid increased [Unknown]
